FAERS Safety Report 8665265 (Version 2)
Quarter: 2012Q4

REPORT INFORMATION
  Report Type: Report from Study
  Country: JP (occurrence: None)
  Receive Date: 20120627
  Receipt Date: 20120905
  Transmission Date: 20130627
  Serious: Yes (Death, Life-Threatening, Hospitalization)
  Sender: FDA-Public Use
  Company Number: TCI2012A03045

PATIENT
  Age: 64 Year
  Sex: Male

DRUGS (6)
  1. ACTOS [Suspect]
     Indication: TYPE 2 DIABETES MELLITUS
     Route: 048
     Dates: start: 20110114, end: 20111203
  2. CRESTOR [Concomitant]
  3. ACINON (NIZATINIDE) [Concomitant]
  4. MUCOSTA (REBAMIPIDE) [Concomitant]
  5. PARIET (RABEPRAZOLE SODIUIM) [Concomitant]
  6. NOVORAPID 30 MIX (INSULIN ASPART) [Concomitant]

REACTIONS (2)
  - Lymphoma [None]
  - Brain neoplasm [None]
